FAERS Safety Report 9704558 (Version 3)
Quarter: 2013Q4

REPORT INFORMATION
  Report Type: Report from Study
  Country: DE (occurrence: DE)
  Receive Date: 20131122
  Receipt Date: 20131211
  Transmission Date: 20140711
  Serious: Yes (Hospitalization)
  Sender: FDA-Public Use
  Company Number: DE-ROCHE-1228780

PATIENT
  Age: 61 Year
  Sex: Male
  Weight: 88 kg

DRUGS (7)
  1. MYCOPHENOLATE MOFETIL [Suspect]
     Indication: RENAL TRANSPLANT
     Dosage: LAST DOSE PRIOR TO SAE: 08/JUN/2009
     Route: 048
     Dates: start: 20090525, end: 20090612
  2. TACROLIMUS [Suspect]
     Indication: RENAL TRANSPLANT
     Dosage: LAST DOSE PRIOR TO SAE: 08/JUN/2009
     Route: 048
     Dates: start: 20090525
  3. TACROLIMUS [Suspect]
     Dosage: DOSE REDUCED.
     Route: 048
     Dates: start: 20090616
  4. BASILIXIMAB [Suspect]
     Indication: RENAL TRANSPLANT
     Dosage: DAY 1 AND DAY 4?LAST DOSE PRIOR TO SAE: 21/APR/2009
     Route: 048
     Dates: start: 20090417
  5. PREDNISONE [Suspect]
     Indication: PRODUCT USED FOR UNKNOWN INDICATION
     Route: 048
     Dates: start: 20090419
  6. PREDNISONE [Suspect]
     Route: 048
     Dates: start: 20090420
  7. PREDNISONE [Suspect]
     Route: 048
     Dates: start: 20090421, end: 20090424

REACTIONS (1)
  - Overdose [Recovered/Resolved with Sequelae]
